FAERS Safety Report 7231676-1 (Version None)
Quarter: 2011Q1

REPORT INFORMATION
  Report Type: 
  Country: None (occurrence: None)
  Receive Date: 20110118
  Receipt Date: 20110105
  Transmission Date: 20110831
  Serious: Yes (Hospitalization, Other)
  Sender: FDA-Public Use
  Company Number: US-ELI_LILLY_AND_COMPANY-US201009008230

PATIENT
  Sex: Male
  Weight: 96.145 kg

DRUGS (3)
  1. TADALAFIL [Suspect]
     Dosage: 20 MG, 2/W
     Dates: end: 20100917
  2. PRAVACHOL [Concomitant]
  3. SYNTHROID [Concomitant]

REACTIONS (3)
  - CORONARY ARTERY DISEASE [None]
  - ACUTE CORONARY SYNDROME [None]
  - OFF LABEL USE [None]
